FAERS Safety Report 8960955 (Version 3)
Quarter: 2014Q2

REPORT INFORMATION
  Report Type: Spontaneous
  Country: US (occurrence: US)
  Receive Date: 20121212
  Receipt Date: 20140502
  Transmission Date: 20141212
  Serious: Yes (Hospitalization, Other)
  Sender: FDA-Public Use
  Company Number: US-ASTRAZENECA-2012SE90995

PATIENT
  Age: 986 Month
  Sex: Female
  Weight: 63.5 kg

DRUGS (12)
  1. SYMBICORT PMDI [Suspect]
     Indication: CHRONIC OBSTRUCTIVE PULMONARY DISEASE
     Dosage: 160/4.5 MCG 2 INHALATIONS BID
     Route: 055
     Dates: start: 2011
  2. SYMBICORT PMDI [Suspect]
     Indication: CHRONIC OBSTRUCTIVE PULMONARY DISEASE
     Dosage: BID
     Route: 055
  3. SYMBICORT PMDI [Suspect]
     Indication: CHRONIC OBSTRUCTIVE PULMONARY DISEASE
     Dosage: 160/4.5 UG 2 PUFFS BID
     Route: 055
     Dates: start: 201209
  4. SPIRIVA [Suspect]
     Indication: CHRONIC OBSTRUCTIVE PULMONARY DISEASE
     Dosage: 18 MCG, DAILY
     Route: 048
     Dates: start: 201209
  5. ABELOX [Concomitant]
     Indication: SINUSITIS
     Route: 048
     Dates: start: 20121128
  6. CLARITIN [Concomitant]
     Indication: RHINITIS
     Dosage: 1 TABLET DAILY PRN
     Route: 048
     Dates: start: 20121128
  7. LASIX [Concomitant]
     Indication: JOINT SWELLING
     Route: 048
  8. POTASSIUM [Concomitant]
     Indication: ADJUVANT THERAPY
     Route: 048
  9. ZOCOR [Concomitant]
     Indication: BLOOD CHOLESTEROL INCREASED
     Route: 048
  10. ALPRAZOLAM [Concomitant]
     Indication: ANXIETY
     Route: 048
  11. SUCRALFATE [Concomitant]
     Indication: GASTROOESOPHAGEAL REFLUX DISEASE
     Route: 048
  12. FAMOTIDINE [Concomitant]
     Indication: GASTROOESOPHAGEAL REFLUX DISEASE
     Route: 048

REACTIONS (23)
  - Chronic obstructive pulmonary disease [Unknown]
  - Breast cancer [Unknown]
  - Fall [Unknown]
  - Joint injury [Unknown]
  - Haematoma [Unknown]
  - Sinusitis [Recovered/Resolved]
  - Rhinitis [Recovered/Resolved]
  - Hypoacusis [Unknown]
  - Gastrooesophageal reflux disease [Not Recovered/Not Resolved]
  - Gastrooesophageal reflux disease [Not Recovered/Not Resolved]
  - Vomiting [Unknown]
  - Hearing impaired [Not Recovered/Not Resolved]
  - Gait disturbance [Not Recovered/Not Resolved]
  - Visual acuity reduced [Not Recovered/Not Resolved]
  - Wheezing [Unknown]
  - Dry mouth [Not Recovered/Not Resolved]
  - Body height decreased [Not Recovered/Not Resolved]
  - Weight decreased [Unknown]
  - Breast pain [Unknown]
  - Rash pruritic [Recovered/Resolved]
  - Dysphonia [Unknown]
  - Aphonia [Not Recovered/Not Resolved]
  - Off label use [Unknown]
